FAERS Safety Report 4854480-8 (Version None)
Quarter: 2005Q4

REPORT INFORMATION
  Report Type: 
  Country: None (occurrence: None)
  Receive Date: 20051215
  Receipt Date: 20051209
  Transmission Date: 20060501
  Serious: Yes (Life-Threatening)
  Sender: FDA-Public Use
  Company Number: FR-AVENTIS-200514071FR

PATIENT
  Age: 18 Year
  Sex: Female
  Weight: 112 kg

DRUGS (5)
  1. FLAGYL [Suspect]
     Route: 042
     Dates: start: 20041027, end: 20041027
  2. FORENE [Suspect]
     Route: 055
     Dates: start: 20041027, end: 20041027
  3. DIPRIVAN [Suspect]
     Route: 042
     Dates: start: 20041027, end: 20041027
  4. CEFAZOLIN [Suspect]
     Route: 042
     Dates: start: 20041027, end: 20041027
  5. NIMBEX [Suspect]
     Route: 042
     Dates: start: 20041027, end: 20041027

REACTIONS (8)
  - CARDIAC ARREST [None]
  - CARDIO-RESPIRATORY ARREST [None]
  - HAEMORRHAGE [None]
  - HYPERHIDROSIS [None]
  - HYPERTENSION [None]
  - HYPERTHERMIA [None]
  - PARESIS [None]
  - TACHYCARDIA [None]
